FAERS Safety Report 14816545 (Version 2)
Quarter: 2018Q2

REPORT INFORMATION
  Report Type: Report from Study
  Country: BR (occurrence: BR)
  Receive Date: 20180426
  Receipt Date: 20180508
  Transmission Date: 20180711
  Serious: Yes (Hospitalization)
  Sender: FDA-Public Use
  Company Number: PHHY2018BR019920

PATIENT
  Sex: Female
  Weight: 107 kg

DRUGS (7)
  1. COSENTYX [Suspect]
     Active Substance: SECUKINUMAB
     Indication: PSORIATIC ARTHROPATHY
     Dosage: 150 MG, 2 APPLICATIONS A MONTH
     Route: 058
     Dates: start: 201611
  2. COSENTYX [Suspect]
     Active Substance: SECUKINUMAB
     Dosage: 300 MG, QMO
     Route: 058
     Dates: start: 20161114
  3. TRAMAL [Suspect]
     Active Substance: TRAMADOL
     Indication: SPINAL PAIN
     Dosage: 75 MG, UNK
     Route: 065
  4. COSENTYX [Suspect]
     Active Substance: SECUKINUMAB
     Dosage: 300 MG, QMO
     Route: 058
     Dates: start: 20171212, end: 20171212
  5. BENICAR [Concomitant]
     Active Substance: OLMESARTAN MEDOXOMIL
     Indication: HYPERTENSION
     Dosage: UNK
     Route: 065
  6. MINIPRESS [Concomitant]
     Active Substance: PRAZOSIN HYDROCHLORIDE
     Indication: HYPERTENSION
     Dosage: UNK
     Route: 065
  7. COSENTYX [Suspect]
     Active Substance: SECUKINUMAB
     Dosage: 300 MG, QMO
     Route: 058
     Dates: start: 20180131

REACTIONS (19)
  - Spinal pain [Not Recovered/Not Resolved]
  - Injection site haematoma [Unknown]
  - Decreased immune responsiveness [Recovering/Resolving]
  - Hypersensitivity [Recovered/Resolved]
  - Varicose vein [Unknown]
  - Intervertebral disc protrusion [Unknown]
  - Movement disorder [Unknown]
  - Pain in extremity [Not Recovered/Not Resolved]
  - Weight decreased [Unknown]
  - Tremor [Recovered/Resolved]
  - Spinal disorder [Not Recovered/Not Resolved]
  - Blister [Recovered/Resolved]
  - Rash [Recovered/Resolved]
  - Pigmentation disorder [Unknown]
  - Gait disturbance [Unknown]
  - Coccydynia [Not Recovered/Not Resolved]
  - Pelvic deformity [Not Recovered/Not Resolved]
  - Abdominal distension [Not Recovered/Not Resolved]
  - Malaise [Unknown]
